FAERS Safety Report 23531369 (Version 1)
Quarter: 2024Q1

REPORT INFORMATION
  Report Type: Spontaneous
  Country: US (occurrence: US)
  Receive Date: 20240216
  Receipt Date: 20240216
  Transmission Date: 20240410
  Serious: No
  Sender: FDA-Public Use
  Company Number: US-Pharmaand-2023001387

PATIENT
  Sex: Female

DRUGS (2)
  1. RUBRACA [Suspect]
     Active Substance: RUCAPARIB CAMSYLATE
     Indication: Ovarian cancer
     Dosage: 600 MG, TWO TABLETS BY MOUTH TWICE DAILY
     Route: 048
     Dates: start: 202306, end: 202309
  2. RUBRACA [Suspect]
     Active Substance: RUCAPARIB CAMSYLATE
     Dosage: 200 MG, TWO TABLETS BY MOUTHTWICE DAILY
     Route: 048
     Dates: start: 202309, end: 20231206

REACTIONS (1)
  - Haemoglobin decreased [Unknown]
